FAERS Safety Report 11118441 (Version 2)
Quarter: 2015Q2

REPORT INFORMATION
  Report Type: Report from Study
  Country: US (occurrence: US)
  Receive Date: 20150518
  Receipt Date: 20150527
  Transmission Date: 20150821
  Serious: Yes (Other)
  Sender: FDA-Public Use
  Company Number: US-BIOGENIDEC-2015BI064266

PATIENT
  Sex: Female

DRUGS (1)
  1. AVONEX [Suspect]
     Active Substance: INTERFERON BETA-1A
     Indication: MULTIPLE SCLEROSIS
     Route: 030
     Dates: start: 2001, end: 2002

REACTIONS (5)
  - Adverse event [Unknown]
  - Gastrooesophageal reflux disease [Not Recovered/Not Resolved]
  - Breast cancer [Recovered/Resolved]
  - Cardiac disorder [Unknown]
  - Hypersensitivity [Unknown]
